FAERS Safety Report 17489681 (Version 2)
Quarter: 2020Q1

REPORT INFORMATION
  Report Type: Spontaneous
  Country: US (occurrence: US)
  Receive Date: 20200303
  Receipt Date: 20200318
  Transmission Date: 20200409
  Serious: Yes (Other)
  Sender: FDA-Public Use
  Company Number: US-PFIZER INC-2020093152

PATIENT
  Age: 86 Year
  Sex: Male
  Weight: 103.42 kg

DRUGS (1)
  1. LYRICA [Suspect]
     Active Substance: PREGABALIN
     Indication: LIMB DISCOMFORT
     Dosage: 200 MG, DAILY [2 CAPSULES A DAY BY MOUTH]/(2 A DAY)
     Route: 048

REACTIONS (4)
  - Intentional product use issue [Unknown]
  - Dementia Alzheimer^s type [Unknown]
  - Communication disorder [Unknown]
  - Expired product administered [Unknown]
